FAERS Safety Report 25540088 (Version 1)
Quarter: 2025Q3

REPORT INFORMATION
  Report Type: Spontaneous
  Country: US (occurrence: None)
  Receive Date: 20250710
  Receipt Date: 20250710
  Transmission Date: 20251020
  Serious: Yes (Hospitalization, Other)
  Sender: FDA-CTU
  Company Number: None

PATIENT
  Age: 49 Year
  Sex: Female

DRUGS (1)
  1. RETATRUTIDE SODIUM [Suspect]
     Active Substance: RETATRUTIDE SODIUM
     Indication: Weight control
     Dosage: OTHER FREQUENCY : WEEKLY;?
     Route: 058
     Dates: start: 20250709, end: 20250709

REACTIONS (11)
  - Product dispensing error [None]
  - Accidental overdose [None]
  - Nausea [None]
  - Vomiting [None]
  - Dehydration [None]
  - Abdominal pain [None]
  - Hyperhidrosis [None]
  - Headache [None]
  - Visual impairment [None]
  - Ill-defined disorder [None]
  - Product substitution issue [None]

NARRATIVE: CASE EVENT DATE: 20250709
